FAERS Safety Report 7758524-5 (Version None)
Quarter: 2011Q3

REPORT INFORMATION
  Report Type: 
  Country: None (occurrence: None)
  Receive Date: 20110919
  Receipt Date: 20110906
  Transmission Date: 20111222
  Serious: Yes (Other)
  Sender: FDA-Public Use
  Company Number: JP-NOVOPROD-328295

PATIENT

DRUGS (4)
  1. VICTOZA [Suspect]
     Dosage: 0.9 MG, QD
     Route: 058
     Dates: start: 20101105, end: 20110227
  2. VICTOZA [Suspect]
     Dosage: 0.6 MG, QD
     Route: 058
     Dates: start: 20101019
  3. VICTOZA [Suspect]
     Indication: TYPE 2 DIABETES MELLITUS
     Dosage: 0.3 MG, QD
     Route: 058
     Dates: start: 20101005
  4. EPINASTINE [Concomitant]
     Indication: URTICARIA
     Dosage: 20 MG, QD
     Route: 048
     Dates: start: 20110101, end: 20110414

REACTIONS (6)
  - ALANINE AMINOTRANSFERASE INCREASED [None]
  - ASPARTATE AMINOTRANSFERASE INCREASED [None]
  - BLOOD ALKALINE PHOSPHATASE INCREASED [None]
  - GAMMA-GLUTAMYLTRANSFERASE INCREASED [None]
  - URTICARIA [None]
  - BLOOD GLUCOSE ABNORMAL [None]
